FAERS Safety Report 5590755-5 (Version None)
Quarter: 2008Q1

REPORT INFORMATION
  Report Type: 
  Country: None (occurrence: None)
  Receive Date: 20080114
  Receipt Date: 20080104
  Transmission Date: 20080703
  Serious: Yes (Death, Other)
  Sender: FDA-Public Use
  Company Number: US-PFIZER INC-2008001419

PATIENT
  Sex: Male
  Weight: 79.4 kg

DRUGS (2)
  1. ZOLOFT [Suspect]
     Indication: ANXIETY
  2. DIPHENHYDRAMINE HCL [Concomitant]

REACTIONS (2)
  - DEATH [None]
  - DRUG LEVEL INCREASED [None]
